FAERS Safety Report 17161724 (Version 1)
Quarter: 2019Q4

REPORT INFORMATION
  Report Type: Spontaneous
  Country: JP (occurrence: JP)
  Receive Date: 20191217
  Receipt Date: 20191217
  Transmission Date: 20200122
  Serious: Yes (Other)
  Sender: FDA-Public Use
  Company Number: JP-AMGEN-JPNNI2019208596

PATIENT

DRUGS (4)
  1. CALCIUM LEVOFOLINATE [Suspect]
     Active Substance: LEVOLEUCOVORIN CALCIUM
     Indication: RECTAL CANCER
     Dosage: UNK
     Route: 050
  2. PANITUMUMAB [Suspect]
     Active Substance: PANITUMUMAB
     Indication: RECTAL CANCER
     Dosage: UNK
     Route: 050
  3. OXALIPLATIN. [Suspect]
     Active Substance: OXALIPLATIN
     Indication: RECTAL CANCER
     Dosage: UNK
     Route: 050
  4. FLUOROURACIL. [Suspect]
     Active Substance: FLUOROURACIL
     Indication: RECTAL CANCER
     Dosage: UNK
     Route: 065

REACTIONS (9)
  - Ileus [Unknown]
  - Suture rupture [Unknown]
  - Stoma site inflammation [Unknown]
  - Ileus paralytic [Unknown]
  - Gastrointestinal stoma necrosis [Unknown]
  - Dysuria [Unknown]
  - Abdominal abscess [Unknown]
  - Adverse event [Unknown]
  - Disease progression [Unknown]
